FAERS Safety Report 10930246 (Version 5)
Quarter: 2015Q2

REPORT INFORMATION
  Report Type: Spontaneous
  Country: US (occurrence: US)
  Receive Date: 20150319
  Receipt Date: 20150611
  Transmission Date: 20150821
  Serious: No
  Sender: FDA-Public Use
  Company Number: US-PFIZER INC-2015066379

PATIENT
  Age: 48 Year
  Sex: Female
  Weight: 110 kg

DRUGS (3)
  1. SUTENT [Suspect]
     Active Substance: SUNITINIB MALATE
     Indication: RENAL CELL CARCINOMA
     Dosage: 50 MG, 1X/DAY, CYCLIC
     Route: 048
     Dates: start: 20141217
  2. SUTENT [Suspect]
     Active Substance: SUNITINIB MALATE
     Dosage: 37.5 MG, DAILY
     Route: 048
     Dates: start: 20150202, end: 201504
  3. PERCOCET [Concomitant]
     Active Substance: ACETAMINOPHEN\OXYCODONE HYDROCHLORIDE
     Indication: PAIN
     Dosage: UNK, AS NEEDED

REACTIONS (9)
  - Decreased appetite [Not Recovered/Not Resolved]
  - Disease progression [Unknown]
  - Renal cell carcinoma [Unknown]
  - Oral pain [Not Recovered/Not Resolved]
  - Glossodynia [Unknown]
  - Dysgeusia [Not Recovered/Not Resolved]
  - Pain [Unknown]
  - Menorrhagia [Unknown]
  - Gingival pain [Not Recovered/Not Resolved]

NARRATIVE: CASE EVENT DATE: 20150112
